FAERS Safety Report 5245853-2 (Version None)
Quarter: 2007Q1

REPORT INFORMATION
  Report Type: 
  Country: None (occurrence: None)
  Receive Date: 20070216
  Receipt Date: 20070129
  Transmission Date: 20070707
  Serious: No
  Sender: FDA-Public Use
  Company Number: VNL_0296_2006

PATIENT
  Age: 72 Year
  Sex: Male

DRUGS (10)
  1. APOKYN [Suspect]
     Indication: PARKINSON'S DISEASE
     Dosage: 0.2 ML ONCE SC
     Route: 058
     Dates: start: 20061109, end: 20061109
  2. TERAZOSIN HCL [Concomitant]
  3. TIGAN [Concomitant]
  4. STALEVO 100 [Concomitant]
  5. CARBIDOPA AND LEVODOPA [Concomitant]
  6. NASAREL [Concomitant]
  7. FAMOTIDINE [Concomitant]
  8. QVAR 40 [Concomitant]
  9. REQUIP [Concomitant]
  10. MIRAPEX [Concomitant]

REACTIONS (3)
  - HYPERTENSION [None]
  - MOBILITY DECREASED [None]
  - UNRESPONSIVE TO STIMULI [None]
